FAERS Safety Report 9608014 (Version 1)
Quarter: 2013Q4

REPORT INFORMATION
  Report Type: Spontaneous
  Country: US (occurrence: None)
  Receive Date: 20131007
  Receipt Date: 20131007
  Transmission Date: 20140711
  Serious: Yes (Life-Threatening, Hospitalization)
  Sender: FDA-Public Use
  Company Number: 2013P1019744

PATIENT
  Age: 28 Year
  Sex: Male

DRUGS (5)
  1. DIAZEPAM [Suspect]
     Dosage: X1; PO
     Route: 048
  2. AMITRIPTYLINE [Suspect]
     Dosage: X1; PO
     Route: 048
  3. POISON HEMLOCK [Suspect]
     Dosage: X1; PO
     Route: 048
  4. QUETIAPINE [Concomitant]
  5. DIMENHYDRINATE [Concomitant]

REACTIONS (13)
  - Respiratory failure [None]
  - Quadriparesis [None]
  - Poisoning [None]
  - Suicide attempt [None]
  - Agitation [None]
  - Anger [None]
  - Unresponsive to stimuli [None]
  - Treatment noncompliance [None]
  - Mydriasis [None]
  - Hypotonia [None]
  - Areflexia [None]
  - Clonus [None]
  - Hypoventilation [None]
